FAERS Safety Report 5709043-9 (Version None)
Quarter: 2008Q2

REPORT INFORMATION
  Report Type: 
  Country: None (occurrence: None)
  Receive Date: 20080416
  Receipt Date: 20080416
  Transmission Date: 20081010
  Serious: Yes (Hospitalization)
  Sender: FDA-Public Use
  Company Number: None

PATIENT
  Age: 80 Year
  Sex: Male
  Weight: 68.7 kg

DRUGS (10)
  1. WARFARIN SODIUM [Suspect]
     Indication: ATRIAL FIBRILLATION
     Dosage: 6MG DAILY PO  (DURATION: CHRONIC)
     Route: 048
  2. AZITHROMYCIN [Suspect]
     Indication: PNEUMONIA
     Dosage: 500 MG DAILY IV
     Route: 042
     Dates: start: 20071204, end: 20071205
  3. NORVASC [Concomitant]
  4. CLONIDINE HCL [Concomitant]
  5. LASIX [Concomitant]
  6. AZTREONAM [Concomitant]
  7. DIGOXIN [Concomitant]
  8. VANC. [Concomitant]
  9. CEFDINIR [Concomitant]
  10. DONEPEZIL HCL [Concomitant]

REACTIONS (3)
  - HAEMATOMA [None]
  - INTERNATIONAL NORMALISED RATIO INCREASED [None]
  - PNEUMONIA [None]
